FAERS Safety Report 16234902 (Version 1)
Quarter: 2019Q2

REPORT INFORMATION
  Report Type: Spontaneous
  Country: ES (occurrence: ES)
  Receive Date: 20190424
  Receipt Date: 20190424
  Transmission Date: 20190711
  Serious: Yes (Hospitalization)
  Sender: FDA-Public Use
  Company Number: PHHY2019ES090474

PATIENT
  Age: 56 Year
  Sex: Female

DRUGS (2)
  1. OMEPRAZOLE. [Suspect]
     Active Substance: OMEPRAZOLE
     Indication: HELICOBACTER INFECTION
     Dosage: 80 MG, BID (BEFORE BREAKFAST AND DINNER)
     Route: 048
  2. PYLERA [Suspect]
     Active Substance: BISMUTH SUBCITRATE POTASSIUM\METRONIDAZOLE\TETRACYCLINE HYDROCHLORIDE
     Indication: HELICOBACTER INFECTION
     Dosage: 12 DF, QID (FOR BREAKFAST, LUNCH, SNACK AND DINNER)
     Route: 048

REACTIONS (2)
  - Clostridium difficile colitis [Recovered/Resolved]
  - Wrong technique in product usage process [Unknown]
